FAERS Safety Report 7044761-4 (Version None)
Quarter: 2010Q4

REPORT INFORMATION
  Report Type: 
  Country: None (occurrence: None)
  Receive Date: 20101014
  Receipt Date: 20100930
  Transmission Date: 20110411
  Serious: Yes (Hospitalization)
  Sender: FDA-Public Use
  Company Number: US-ELI_LILLY_AND_COMPANY-US201010000251

PATIENT
  Sex: Male
  Weight: 170.3 kg

DRUGS (14)
  1. GEMCITABINE HCL [Suspect]
     Indication: PANCREATIC CARCINOMA
     Dosage: 1930 MG, DAYS 1, 8 AND 15
     Route: 042
     Dates: start: 20100917
  2. OTHER PHARMA COMPANY INV DRUG [Suspect]
     Indication: PANCREATIC CARCINOMA
     Dosage: 100 MG, DAILY (1/D)
     Route: 048
     Dates: start: 20100917
  3. PACLITAXEL [Suspect]
     Indication: PANCREATIC CARCINOMA
     Dosage: 145 MG, DAYS 1, 8 AND 15
     Route: 042
     Dates: start: 20100917
  4. ACTOS [Concomitant]
  5. GLYBURIDE [Concomitant]
  6. LISINOPRIL [Concomitant]
  7. SIMVASTATIN [Concomitant]
  8. CREON [Concomitant]
  9. MORPHINE SULFATE [Concomitant]
  10. LORTAB [Concomitant]
  11. PEPCID [Concomitant]
  12. PROCHLORPERAZINE [Concomitant]
  13. ONDANSETRON [Concomitant]
  14. NORTRIPTYLINE [Concomitant]

REACTIONS (7)
  - DEHYDRATION [None]
  - DUODENAL OBSTRUCTION [None]
  - DUODENAL ULCER [None]
  - DYSPEPSIA [None]
  - FATIGUE [None]
  - HYPERBILIRUBINAEMIA [None]
  - OESOPHAGITIS [None]
